FAERS Safety Report 7053250-2 (Version None)
Quarter: 2010Q4

REPORT INFORMATION
  Report Type: 
  Country: None (occurrence: None)
  Receive Date: 20101020
  Receipt Date: 20101015
  Transmission Date: 20110411
  Serious: Yes (Hospitalization)
  Sender: FDA-Public Use
  Company Number: DE-WYE-G06814410

PATIENT
  Sex: Male

DRUGS (3)
  1. TORISEL [Suspect]
     Indication: METASTATIC RENAL CELL CARCINOMA
     Route: 042
     Dates: start: 20100326, end: 20100901
  2. ZOMETA [Concomitant]
     Indication: METASTATIC RENAL CELL CARCINOMA
     Dosage: 4 MG, FREQUENCY UNKNOWN
  3. DIMENHYDRINATE [Concomitant]
     Indication: PREMEDICATION
     Dosage: UNKNOWN
     Dates: start: 20100326

REACTIONS (7)
  - ATELECTASIS [None]
  - DYSPNOEA EXERTIONAL [None]
  - FATIGUE [None]
  - PLEURAL EFFUSION [None]
  - PNEUMONIA [None]
  - PROCTITIS [None]
  - RASH [None]
